FAERS Safety Report 13344186 (Version 2)
Quarter: 2017Q3

REPORT INFORMATION
  Report Type: Spontaneous
  Country: BR (occurrence: BR)
  Receive Date: 20170316
  Receipt Date: 20170830
  Transmission Date: 20171127
  Serious: Yes (Other)
  Sender: FDA-Public Use
  Company Number: BR-ABBVIE-17P-020-1908847-00

PATIENT
  Sex: Female
  Weight: 110 kg

DRUGS (9)
  1. DEPAKENE [Suspect]
     Active Substance: VALPROIC ACID
     Indication: PRODUCT USED FOR UNKNOWN INDICATION
     Route: 065
  2. DEPAKENE [Suspect]
     Active Substance: VALPROIC ACID
     Indication: PRODUCT USED FOR UNKNOWN INDICATION
     Route: 065
  3. DEPAKOTE [Suspect]
     Active Substance: DIVALPROEX SODIUM
     Indication: SEIZURE
     Route: 048
  4. OMEPRAZOLE. [Concomitant]
     Active Substance: OMEPRAZOLE
     Indication: ABDOMINAL DISCOMFORT
     Dosage: SOMETIMES
     Route: 048
  5. XANTINON [Concomitant]
     Indication: LIVER DISORDER
     Route: 048
  6. CLONAZEPAM. [Concomitant]
     Active Substance: CLONAZEPAM
     Indication: FEELING OF RELAXATION
     Route: 048
  7. PURAN [Concomitant]
     Active Substance: LEVOTHYROXINE SODIUM
     Indication: THYROID DISORDER
     Route: 048
  8. RISPERIDONE. [Suspect]
     Active Substance: RISPERIDONE
     Indication: SCHIZOPHRENIA
     Route: 048
  9. PROPRANOLOL HYDROCHLORIDE. [Concomitant]
     Active Substance: PROPRANOLOL HYDROCHLORIDE
     Indication: ARRHYTHMIA
     Route: 048

REACTIONS (13)
  - Dry mouth [Recovered/Resolved]
  - Confusional state [Not Recovered/Not Resolved]
  - Presyncope [Not Recovered/Not Resolved]
  - Memory impairment [Not Recovered/Not Resolved]
  - Cholelithiasis [Recovered/Resolved]
  - Hangover [Recovered/Resolved]
  - Dizziness [Not Recovered/Not Resolved]
  - Tremor [Not Recovered/Not Resolved]
  - Malaise [Recovered/Resolved]
  - Headache [Not Recovered/Not Resolved]
  - Intellectual disability [Not Recovered/Not Resolved]
  - Visual impairment [Not Recovered/Not Resolved]
  - Malaise [Not Recovered/Not Resolved]
